FAERS Safety Report 16769301 (Version 6)
Quarter: 2020Q1

REPORT INFORMATION
  Report Type: Report from Study
  Country: US (occurrence: US)
  Receive Date: 20190903
  Receipt Date: 20200106
  Transmission Date: 20200409
  Serious: Yes (Hospitalization, Other)
  Sender: FDA-Public Use
  Company Number: US-ACTELION-A-US2019-189672

PATIENT
  Sex: Female
  Weight: 49.43 kg

DRUGS (25)
  1. OXYGEN. [Concomitant]
     Active Substance: OXYGEN
     Dosage: 4 L/MINWITH EXERTIONAL ACTIVITIES
  2. CLARITIN [Concomitant]
     Active Substance: LORATADINE
     Dosage: 10 MG, QD
  3. ADCIRCA [Concomitant]
     Active Substance: TADALAFIL
  4. OXYGEN. [Concomitant]
     Active Substance: OXYGEN
     Dosage: 3 L/MIN
  5. AYR SALINE [Concomitant]
     Active Substance: SODIUM CHLORIDE
  6. LETAIRIS [Suspect]
     Active Substance: AMBRISENTAN
     Indication: PRODUCT USED FOR UNKNOWN INDICATION
     Dosage: 10 MG, QD
     Route: 048
     Dates: start: 20171128
  7. ZOFRAN [Concomitant]
     Active Substance: ONDANSETRON HYDROCHLORIDE
     Dosage: 4 MG
  8. OXYGEN. [Concomitant]
     Active Substance: OXYGEN
     Dosage: UNK
  9. TADALAFIL. [Concomitant]
     Active Substance: TADALAFIL
     Dosage: 20 MG
  10. LASIX [Concomitant]
     Active Substance: FUROSEMIDE
     Dosage: 20 MG, BID
  11. MIRALAX [Concomitant]
     Active Substance: POLYETHYLENE GLYCOL 3350
     Dosage: 17 G, BID
  12. UPTRAVI [Suspect]
     Active Substance: SELEXIPAG
     Indication: PULMONARY HYPERTENSION
     Dosage: 400 MCG, BID
     Route: 048
  13. OXYGEN. [Concomitant]
     Active Substance: OXYGEN
     Dosage: 3.5 L/MIN AT REST
  14. PROVENTIL HFA [Concomitant]
     Active Substance: ALBUTEROL SULFATE
  15. FLONASE [Concomitant]
     Active Substance: FLUTICASONE PROPIONATE
     Dosage: 50 MCG, QD
  16. IPRATROPIUM BROMIDE AND ALBUTEROL SULFATE [Concomitant]
     Active Substance: ALBUTEROL SULFATE\IPRATROPIUM BROMIDE
  17. NARCAN [Concomitant]
     Active Substance: NALOXONE HYDROCHLORIDE
  18. LIPODERMA [Concomitant]
  19. CYANOCOBALAMIN. [Concomitant]
     Active Substance: CYANOCOBALAMIN
     Dosage: 1000 MCG
  20. NEPRO [Concomitant]
     Active Substance: DIETARY SUPPLEMENT
     Dosage: UNK, BID
  21. OXYCODONE [Concomitant]
     Active Substance: OXYCODONE
     Dosage: 5 MG
  22. SPIRIVA [Concomitant]
     Active Substance: TIOTROPIUM BROMIDE MONOHYDRATE
     Dosage: UNK, QD
  23. MINERAL [Concomitant]
     Dosage: UNK, PRN
  24. PANTOPRAZOLE [Concomitant]
     Active Substance: PANTOPRAZOLE
     Dosage: 40 MG, BID
  25. TRAMADOL. [Concomitant]
     Active Substance: TRAMADOL
     Dosage: 50 MG

REACTIONS (55)
  - Dyspnoea [Recovered/Resolved]
  - Pericardial effusion [Unknown]
  - Headache [Not Recovered/Not Resolved]
  - Blood loss anaemia [Recovered/Resolved]
  - Cellulitis [Recovered/Resolved]
  - Osteoarthritis [Unknown]
  - Transfusion [Recovered/Resolved]
  - Intestinal obstruction [Recovered/Resolved]
  - Respiratory failure [Recovered/Resolved]
  - Cardiac failure [Recovered/Resolved]
  - Anaemia of chronic disease [Recovered/Resolved]
  - Nephrogenic anaemia [Unknown]
  - Coronary artery disease [Unknown]
  - Skin ulcer [Unknown]
  - Cardiac murmur [Unknown]
  - Prolonged expiration [Unknown]
  - Cardiomyopathy [Unknown]
  - Asthenia [Unknown]
  - Hyponatraemia [Recovered/Resolved]
  - Anaemia [Unknown]
  - Hypotension [Recovering/Resolving]
  - Acute respiratory distress syndrome [Unknown]
  - Arthralgia [Unknown]
  - Intestinal polyp [Unknown]
  - Atrial fibrillation [Unknown]
  - Haemoglobin decreased [Unknown]
  - Scleroderma [Unknown]
  - Nasal congestion [Unknown]
  - Hypoxia [Unknown]
  - Chronic kidney disease [Recovered/Resolved]
  - Diarrhoea [Recovered/Resolved]
  - Rales [Unknown]
  - Iron deficiency anaemia [Recovered/Resolved]
  - Gastrooesophageal reflux disease [Unknown]
  - Telangiectasia [Unknown]
  - Obstruction [Recovered/Resolved]
  - Gastric antral vascular ectasia [Not Recovered/Not Resolved]
  - Loss of consciousness [Recovered/Resolved]
  - Oxygen consumption increased [Not Recovered/Not Resolved]
  - Fatigue [Unknown]
  - Pain in extremity [Recovered/Resolved]
  - Decubitus ulcer [Recovered/Resolved]
  - Malnutrition [Unknown]
  - Hypertension [Unknown]
  - Skin tightness [Unknown]
  - Gastric haemorrhage [Recovered/Resolved]
  - Pneumonia [Recovered/Resolved]
  - Right ventricular failure [Unknown]
  - Haemoglobin [Recovering/Resolving]
  - Anxiety disorder [Unknown]
  - Chronic obstructive pulmonary disease [Unknown]
  - Systemic scleroderma [Recovered/Resolved]
  - Hyperparathyroidism secondary [Unknown]
  - Pain [Unknown]
  - Mitral valve incompetence [Unknown]
